FAERS Safety Report 8387885-1 (Version None)
Quarter: 2012Q2

REPORT INFORMATION
  Report Type: 
  Country: None (occurrence: None)
  Receive Date: 20120525
  Receipt Date: 20120517
  Transmission Date: 20120825
  Serious: Yes (Hospitalization)
  Sender: FDA-Public Use
  Company Number: JP-PFIZER INC-2011018982

PATIENT
  Age: 42 Year
  Sex: Female

DRUGS (3)
  1. PEGVISOMANT [Suspect]
     Indication: ACROMEGALY
     Dosage: 10 MG, 1X/DAY
     Route: 058
     Dates: start: 20070703, end: 20071217
  2. LEVOTHYROXINE SODIUM [Concomitant]
     Dosage: 50 UG, 1X/DAY
     Route: 048
     Dates: start: 20040309
  3. PEGVISOMANT [Suspect]
     Dosage: 15 MG, 1X/DAY
     Route: 058
     Dates: start: 20071218

REACTIONS (1)
  - PITUITARY TUMOUR BENIGN [None]
